FAERS Safety Report 9009921 (Version 1)
Quarter: 2013Q1

REPORT INFORMATION
  Report Type: Spontaneous
  Country: US (occurrence: US)
  Receive Date: 20130112
  Receipt Date: 20130112
  Transmission Date: 20140127
  Serious: Yes (Hospitalization, Other)
  Sender: FDA-Public Use
  Company Number: US-009507513-1301USA001416

PATIENT
  Age: 57 Year
  Sex: Female

DRUGS (6)
  1. SINGULAIR [Suspect]
     Indication: ASTHMA
     Route: 048
  2. ATARAX (HYDROXYZINE HYDROCHLORIDE) [Suspect]
     Indication: ANXIETY
     Dosage: 50 MG, HS
     Route: 048
  3. EFFERALGAN [Suspect]
     Route: 048
  4. ATROVENT [Suspect]
     Dosage: 1 PUFF, BID
     Route: 055
  5. BRICANYL [Suspect]
     Dosage: 1 PUFF, BID
     Route: 055
  6. FLIXOTIDE [Suspect]
     Dosage: 1 PUFF, BID
     Route: 055

REACTIONS (10)
  - Neuropathy peripheral [Unknown]
  - Pyrexia [Unknown]
  - Neuritis [Unknown]
  - Inflammation [Unknown]
  - General physical health deterioration [Unknown]
  - Eosinophilia [Unknown]
  - Asthma [Unknown]
  - Arthralgia [Unknown]
  - Anaemia [Unknown]
  - Allergic granulomatous angiitis [Unknown]
